FAERS Safety Report 7208161 (Version 2)
Quarter: 2014Q1

REPORT INFORMATION
  Report Type: Spontaneous
  Country: US (occurrence: None)
  Receive Date: 20091124
  Receipt Date: 20140219
  Transmission Date: 20141002
  Serious: Yes (Other)
  Sender: FDA-Public Use
  Company Number: 2009S1008530

PATIENT
  Age: 55 Year
  Sex: Female

DRUGS (2)
  1. PHOSPHO-SODA [Suspect]
     Indication: COLONOSCOPY
     Dosage: 90 ML, 2 IN 24 HOURS, ORAL
     Dates: start: 20081209, end: 20081209
  2. DULCOLAX [Suspect]
     Indication: COLONOSCOPY
     Dosage: TWO TABLETS AT 8:00 P.M., 1 IN 24 HOURS, ORAL
     Dates: start: 20081209, end: 20081209

REACTIONS (1)
  - Renal failure acute [None]
